FAERS Safety Report 9765764 (Version 1)
Quarter: 2013Q4

REPORT INFORMATION
  Report Type: Spontaneous
  Country: US (occurrence: None)
  Receive Date: 20131216
  Receipt Date: 20131216
  Transmission Date: 20140711
  Serious: Yes (Disabling, Other)
  Sender: FDA-Public Use
  Company Number: None

PATIENT
  Age: 20 Year
  Sex: Male
  Weight: 77.11 kg

DRUGS (1)
  1. LATUDA [Suspect]
     Indication: BIPOLAR DISORDER
     Route: 048
     Dates: start: 20130630, end: 20131113

REACTIONS (9)
  - Eye movement disorder [None]
  - Eye pain [None]
  - Impaired driving ability [None]
  - Gait disturbance [None]
  - Fall [None]
  - Insomnia [None]
  - Dysarthria [None]
  - Abasia [None]
  - Visual acuity reduced [None]
